FAERS Safety Report 25138301 (Version 1)
Quarter: 2025Q1

REPORT INFORMATION
  Report Type: Spontaneous
  Country: US (occurrence: US)
  Receive Date: 20250330
  Receipt Date: 20250330
  Transmission Date: 20250409
  Serious: No
  Sender: GLAXOSMITHKLINE
  Company Number: US-GSK-US2025034218

PATIENT
  Age: 65 Year
  Sex: Female
  Weight: 73.48 kg

DRUGS (1)
  1. BREO ELLIPTA [Suspect]
     Active Substance: FLUTICASONE FUROATE\VILANTEROL TRIFENATATE
     Indication: Chronic obstructive pulmonary disease
     Dosage: 1 PUFF(S), QD (200-25MCG)
     Dates: start: 202501

REACTIONS (2)
  - Mouth ulceration [Unknown]
  - Product use issue [Unknown]

NARRATIVE: CASE EVENT DATE: 20250101
